FAERS Safety Report 17440068 (Version 2)
Quarter: 2020Q1

REPORT INFORMATION
  Report Type: Spontaneous
  Country: US (occurrence: US)
  Receive Date: 20200220
  Receipt Date: 20200317
  Transmission Date: 20200409
  Serious: Yes (Other)
  Sender: FDA-Public Use
  Company Number: US-PFIZER INC-2020074615

PATIENT
  Age: 62 Year
  Sex: Female

DRUGS (1)
  1. XELJANZ [Suspect]
     Active Substance: TOFACITINIB CITRATE
     Dosage: 5 MG, UNK
     Dates: start: 2020

REACTIONS (8)
  - Sensitivity to weather change [Unknown]
  - Sinusitis [Unknown]
  - Platelet count decreased [Unknown]
  - Prolapse [Unknown]
  - Blood blister [Unknown]
  - Product dose omission [Unknown]
  - Memory impairment [Unknown]
  - Condition aggravated [Unknown]
